FAERS Safety Report 7500109-X (Version None)
Quarter: 2011Q2

REPORT INFORMATION
  Report Type: 
  Country: None (occurrence: None)
  Receive Date: 20110524
  Receipt Date: 20100504
  Transmission Date: 20111010
  Serious: No
  Sender: FDA-Public Use
  Company Number: US-NOVEN-ALL1-2010-01804

PATIENT

DRUGS (2)
  1. DAYTRANA [Suspect]
     Dosage: 20 MG, 1X/DAY:QD
     Route: 062
     Dates: start: 20100327
  2. RITALIN [Concomitant]
     Dosage: 5 MG, AS REQ'D
     Route: 048
     Dates: start: 20090101

REACTIONS (6)
  - DRUG PRESCRIBING ERROR [None]
  - APPLICATION SITE ERYTHEMA [None]
  - APPLICATION SITE DISCOMFORT [None]
  - DRUG ADMINISTERED AT INAPPROPRIATE SITE [None]
  - PRODUCT QUALITY ISSUE [None]
  - DRUG INEFFECTIVE [None]
